FAERS Safety Report 6721541-8 (Version None)
Quarter: 2010Q2

REPORT INFORMATION
  Report Type: 
  Country: None (occurrence: None)
  Receive Date: 20100512
  Receipt Date: 20100503
  Transmission Date: 20101027
  Serious: Yes (Other)
  Sender: FDA-Public Use
  Company Number: FR-ASTRAZENECA-2010SE20453

PATIENT
  Age: 18067 Day
  Sex: Male
  Weight: 70 kg

DRUGS (3)
  1. RHINOCORT [Suspect]
     Indication: NASAL POLYPS
     Dosage: TWO PUFFS IN EACH NOSTRIL EVERY MORNING TOTAL 256 MCG
     Route: 045
     Dates: end: 20100412
  2. SOLUPRED [Concomitant]
     Dates: start: 20090828, end: 20090830
  3. SOLUPRED [Concomitant]
     Dates: start: 20100118, end: 20100121

REACTIONS (1)
  - OSTEONECROSIS [None]
